FAERS Safety Report 13477802 (Version 4)
Quarter: 2017Q3

REPORT INFORMATION
  Report Type: Spontaneous
  Country: US (occurrence: US)
  Receive Date: 20170425
  Receipt Date: 20170807
  Transmission Date: 20171127
  Serious: Yes (Hospitalization, Other)
  Sender: FDA-Public Use
  Company Number: US-PFIZER INC-2017178513

PATIENT
  Age: 61 Year
  Sex: Female

DRUGS (3)
  1. DILANTIN [Suspect]
     Active Substance: PHENYTOIN
     Indication: SEIZURE
  2. LOVENOX [Suspect]
     Active Substance: ENOXAPARIN SODIUM
     Indication: THROMBOSIS
     Dosage: 80 MG, 2X/DAY
     Dates: start: 20170419
  3. DILANTIN [Suspect]
     Active Substance: PHENYTOIN
     Indication: CEREBRAL PALSY
     Dosage: 300 MG, DAILY
     Dates: start: 1967

REACTIONS (5)
  - Malaise [Recovered/Resolved]
  - Musculoskeletal pain [Recovered/Resolved]
  - Pain in extremity [Recovered/Resolved]
  - Hypoaesthesia [Recovered/Resolved]
  - Thrombosis [Recovered/Resolved]

NARRATIVE: CASE EVENT DATE: 20170419
